FAERS Safety Report 5314356-9 (Version None)
Quarter: 2007Q2

REPORT INFORMATION
  Report Type: 
  Country: None (occurrence: None)
  Receive Date: 20070502
  Receipt Date: 20070420
  Transmission Date: 20071010
  Serious: Yes (Other)
  Sender: FDA-Public Use
  Company Number: PHBS2007BR06214

PATIENT
  Sex: Male

DRUGS (4)
  1. TRILEPTAL [Suspect]
     Dosage: 3 OR 4 TABLETS/DAY
     Route: 048
  2. TRILEPTAL [Suspect]
     Dosage: 1 TABLET/DAY
     Route: 048
  3. DIURETICS [Concomitant]
  4. CARBAMAZEPINE [Concomitant]

REACTIONS (2)
  - CONVULSION [None]
  - HYPONATRAEMIA [None]
